FAERS Safety Report 19275825 (Version 1)
Quarter: 2021Q2

REPORT INFORMATION
  Report Type: Spontaneous
  Country: NL (occurrence: IE)
  Receive Date: 20210519
  Receipt Date: 20210519
  Transmission Date: 20210717
  Serious: Yes (Hospitalization, Other)
  Sender: FDA-Public Use
  Company Number: IE-FRESENIUS KABI-FK202104925

PATIENT
  Age: 77 Year
  Sex: Male
  Weight: 100 kg

DRUGS (8)
  1. ETOPOSIDE (MANUFACTURER UNKNOWN) [Suspect]
     Active Substance: ETOPOSIDE
     Indication: NON-HODGKIN^S LYMPHOMA
     Route: 065
  2. PREDNISONE. [Suspect]
     Active Substance: PREDNISONE
     Indication: NON-HODGKIN^S LYMPHOMA
     Route: 065
  3. SPIRONOLACTONE. [Concomitant]
     Active Substance: SPIRONOLACTONE
     Indication: PRODUCT USED FOR UNKNOWN INDICATION
     Route: 065
  4. ESOMEPRAZOLE MAGNESIUM. [Concomitant]
     Active Substance: ESOMEPRAZOLE MAGNESIUM
     Indication: PRODUCT USED FOR UNKNOWN INDICATION
     Route: 065
  5. DOXORUBICIN [Suspect]
     Active Substance: DOXORUBICIN
     Indication: NON-HODGKIN^S LYMPHOMA
     Route: 065
  6. CYCLOPHOSPHAMIDE. [Suspect]
     Active Substance: CYCLOPHOSPHAMIDE
     Indication: NON-HODGKIN^S LYMPHOMA
     Route: 065
  7. RITUXIMAB. [Suspect]
     Active Substance: RITUXIMAB
     Indication: NON-HODGKIN^S LYMPHOMA
     Route: 065
  8. VALACICLOVIR HYDROCHLORIDE [Concomitant]
     Active Substance: VALACYCLOVIR HYDROCHLORIDE
     Indication: PRODUCT USED FOR UNKNOWN INDICATION
     Route: 065

REACTIONS (18)
  - Deep vein thrombosis [Unknown]
  - Gynaecomastia [Unknown]
  - Cholecystitis infective [Unknown]
  - Sinusitis [Unknown]
  - Sepsis [Unknown]
  - Myopathy [Unknown]
  - Pneumonia [Unknown]
  - Blood lactate dehydrogenase increased [Unknown]
  - Benign neoplasm of skin [Unknown]
  - CSF volume increased [Unknown]
  - Metastases to meninges [Unknown]
  - Venous thrombosis [Unknown]
  - Pulmonary embolism [Unknown]
  - Muscular weakness [Unknown]
  - Gait disturbance [Unknown]
  - Colitis [Unknown]
  - Herpes zoster [Unknown]
  - Neutropenia [Unknown]

NARRATIVE: CASE EVENT DATE: 200711
